FAERS Safety Report 16851339 (Version 1)
Quarter: 2019Q3

REPORT INFORMATION
  Report Type: Spontaneous
  Country: US (occurrence: US)
  Receive Date: 20190925
  Receipt Date: 20190925
  Transmission Date: 20191005
  Serious: Yes (Other)
  Sender: FDA-Public Use
  Company Number: US-PFIZER INC-2019411590

PATIENT
  Age: 55 Year
  Sex: Female

DRUGS (2)
  1. IBRANCE [Suspect]
     Active Substance: PALBOCICLIB
     Indication: BREAST CANCER METASTATIC
     Dosage: 75 MG, CYCLIC (DAILY FOR 3 WEEKS THEN 1 WEEK OFF, WITH FOOD AND NO GRAPEFRUIT OR GRAPEFRUIT JUICE)
     Route: 048
  2. LETROZOLE. [Suspect]
     Active Substance: LETROZOLE
     Indication: BREAST CANCER METASTATIC

REACTIONS (4)
  - Hepatitis C [Unknown]
  - Hepatic enzyme increased [Unknown]
  - Neoplasm progression [Unknown]
  - Fibrosis [Unknown]
